FAERS Safety Report 13399224 (Version 1)
Quarter: 2017Q2

REPORT INFORMATION
  Report Type: Spontaneous
  Country: CO (occurrence: CO)
  Receive Date: 20170404
  Receipt Date: 20170404
  Transmission Date: 20170830
  Serious: Yes (Hospitalization)
  Sender: FDA-Public Use
  Company Number: CO-OCTA-GAM07717CO

PATIENT
  Age: 23 Year
  Sex: Male

DRUGS (1)
  1. OCTAGAM IMMUNE GLOBULIN (HUMAN) [Suspect]
     Active Substance: HUMAN IMMUNOGLOBULIN G
     Indication: GUILLAIN-BARRE SYNDROME
     Route: 042
     Dates: start: 20170226, end: 20170303

REACTIONS (2)
  - Drug ineffective [Unknown]
  - Cranial nerve disorder [Recovered/Resolved]

NARRATIVE: CASE EVENT DATE: 20170226
